FAERS Safety Report 20089838 (Version 2)
Quarter: 2023Q4

REPORT INFORMATION
  Report Type: Spontaneous
  Country: US (occurrence: US)
  Receive Date: 20211119
  Receipt Date: 20231101
  Transmission Date: 20240109
  Serious: Yes (Other)
  Sender: FDA-Public Use
  Company Number: US-COOPERSURGICAL, INC.-US-2021CPS003475

PATIENT
  Age: 23 Year
  Sex: Female
  Weight: 83.9 kg

DRUGS (4)
  1. PARAGARD T 380A [Suspect]
     Active Substance: COPPER
     Indication: Contraception
     Dosage: UNK
     Route: 015
     Dates: start: 20151109
  2. VITAMINS [Concomitant]
     Active Substance: VITAMINS
     Indication: Product used for unknown indication
     Route: 065
  3. VITAMIN C [Concomitant]
     Active Substance: ASCORBIC ACID
     Indication: Product used for unknown indication
     Dosage: UNK
     Route: 065
  4. VITAMIN D NOS [Concomitant]
     Active Substance: VITAMIN D NOS
     Indication: Vitamin D deficiency
     Route: 065

REACTIONS (18)
  - Spondylolisthesis [Unknown]
  - Incomplete spinal fusion [Unknown]
  - Bell^s palsy [Unknown]
  - Device breakage [Unknown]
  - Foreign body in reproductive tract [Unknown]
  - Complication of device removal [Unknown]
  - Contrast media allergy [Recovered/Resolved]
  - Dermatitis contact [Recovered/Resolved]
  - Emotional distress [Unknown]
  - Anxiety [Unknown]
  - Depression [Unknown]
  - Coital bleeding [Unknown]
  - Procedural pain [Recovered/Resolved]
  - Muscle spasms [Unknown]
  - Menstruation irregular [Unknown]
  - Abnormal uterine bleeding [Recovered/Resolved]
  - Intermenstrual bleeding [Unknown]
  - Device expulsion [Recovered/Resolved]

NARRATIVE: CASE EVENT DATE: 20151109
